FAERS Safety Report 19248386 (Version 1)
Quarter: 2021Q2

REPORT INFORMATION
  Report Type: Report from Study
  Country: CA (occurrence: CA)
  Receive Date: 20210512
  Receipt Date: 20210512
  Transmission Date: 20210717
  Serious: Yes (Other)
  Sender: FDA-Public Use
  Company Number: NVSC2020CA219542

PATIENT
  Age: 70 Year
  Sex: Male

DRUGS (1)
  1. EZETIMIBE. [Suspect]
     Active Substance: EZETIMIBE
     Indication: LOW DENSITY LIPOPROTEIN INCREASED
     Dosage: 10 MG, QD
     Route: 048
     Dates: start: 20190701, end: 20190930

REACTIONS (4)
  - Treatment failure [Unknown]
  - Hypertension [Unknown]
  - Neoplasm malignant [Unknown]
  - Low density lipoprotein increased [Unknown]
